FAERS Safety Report 21466163 (Version 7)
Quarter: 2023Q2

REPORT INFORMATION
  Report Type: Spontaneous
  Country: US (occurrence: US)
  Receive Date: 20221017
  Receipt Date: 20230412
  Transmission Date: 20230722
  Serious: Yes (Hospitalization, Other)
  Sender: FDA-Public Use
  Company Number: US-PFIZER INC-PV202200081936

PATIENT
  Age: 64 Year
  Sex: Female

DRUGS (1)
  1. XELJANZ XR [Suspect]
     Active Substance: TOFACITINIB CITRATE
     Indication: Rheumatoid arthritis
     Dosage: 11 MG, 1X/DAY
     Route: 048
     Dates: start: 20220824, end: 20221231

REACTIONS (20)
  - Hip surgery [Unknown]
  - Functional gastrointestinal disorder [Unknown]
  - Arthralgia [Recovered/Resolved]
  - Thrombosis [Unknown]
  - Drug ineffective [Unknown]
  - Arthralgia [Not Recovered/Not Resolved]
  - Arthropathy [Not Recovered/Not Resolved]
  - Blood cholesterol increased [Unknown]
  - Contusion [Unknown]
  - Drug effect less than expected [Unknown]
  - Dyspepsia [Unknown]
  - Dyspnoea [Recovered/Resolved]
  - Fall [Unknown]
  - Groin pain [Recovered/Resolved]
  - Heart rate increased [Recovered/Resolved]
  - Mobility decreased [Recovered/Resolved]
  - Pain in extremity [Unknown]
  - Skin abrasion [Unknown]
  - Weight increased [Unknown]
  - Arthritis [Unknown]

NARRATIVE: CASE EVENT DATE: 20221010
